FAERS Safety Report 7221587-X (Version None)
Quarter: 2011Q1

REPORT INFORMATION
  Report Type: 
  Country: None (occurrence: None)
  Receive Date: 20110112
  Receipt Date: 20110103
  Transmission Date: 20110831
  Serious: Yes (Other)
  Sender: FDA-Public Use
  Company Number: US-PFIZER INC-2011001070

PATIENT
  Sex: Female
  Weight: 67.12 kg

DRUGS (2)
  1. ZOLOFT [Suspect]
     Indication: DEPRESSION
     Dosage: 100 MG, 1X/DAY
     Route: 048
     Dates: start: 20090101, end: 20090101
  2. ZOLOFT [Suspect]
     Indication: ANXIETY

REACTIONS (7)
  - DECREASED APPETITE [None]
  - CONVULSION [None]
  - CONDITION AGGRAVATED [None]
  - BRAIN OPERATION [None]
  - INSOMNIA [None]
  - ABNORMAL BEHAVIOUR [None]
  - DEPRESSION [None]
